FAERS Safety Report 6258623-3 (Version None)
Quarter: 2009Q3

REPORT INFORMATION
  Report Type: 
  Country: None (occurrence: None)
  Receive Date: 20090702
  Receipt Date: 20090622
  Transmission Date: 20100115
  Serious: Yes (Death)
  Sender: FDA-Public Use
  Company Number: 1000007120

PATIENT
  Sex: Female

DRUGS (1)
  1. MEMANTINE HCL [Suspect]
     Indication: DEMENTIA WITH LEWY BODIES
     Dates: start: 20040101

REACTIONS (1)
  - CEREBRAL HAEMORRHAGE [None]
